FAERS Safety Report 8428075-3 (Version None)
Quarter: 2012Q2

REPORT INFORMATION
  Report Type: 
  Country: None (occurrence: None)
  Receive Date: 20120611
  Receipt Date: 20120529
  Transmission Date: 20120825
  Serious: No
  Sender: FDA-Public Use
  Company Number: US-ASTRAZENECA-2012SE34688

PATIENT
  Age: 53 Year
  Sex: Female
  Weight: 53.1 kg

DRUGS (7)
  1. SEROQUEL [Suspect]
     Indication: BIPOLAR DISORDER
     Route: 048
     Dates: start: 20060101, end: 20120301
  2. SEROQUEL [Suspect]
     Route: 048
     Dates: start: 20120101, end: 20120101
  3. SEROQUEL [Suspect]
     Route: 048
     Dates: start: 20120501
  4. PHENERGEN [Concomitant]
     Dosage: AS REQUIRED
  5. PLENDIL [Concomitant]
  6. GABAPENTIN [Concomitant]
  7. LEXAPRO [Concomitant]

REACTIONS (3)
  - NAUSEA [None]
  - DIZZINESS [None]
  - INTENTIONAL DRUG MISUSE [None]
